FAERS Safety Report 4906046-9 (Version None)
Quarter: 2006Q1

REPORT INFORMATION
  Report Type: 
  Country: None (occurrence: None)
  Receive Date: 20060207
  Receipt Date: 20060207
  Transmission Date: 20060701
  Serious: Yes (Other)
  Sender: FDA-Public Use
  Company Number: None

PATIENT
  Age: 46 Year
  Sex: Female
  Weight: 68.0396 kg

DRUGS (2)
  1. PROZAC [Suspect]
     Indication: DEPRESSION
     Dosage: 40 MG DAILY PO
     Route: 048
     Dates: start: 19970510, end: 20051223
  2. CLONAZEPAM [Suspect]
     Indication: ANXIETY
     Dosage: 4.5 DAILY PO
     Route: 048
     Dates: start: 19970510, end: 20051223

REACTIONS (2)
  - AKATHISIA [None]
  - DRUG WITHDRAWAL SYNDROME [None]
